FAERS Safety Report 8538522-4 (Version None)
Quarter: 2012Q3

REPORT INFORMATION
  Report Type: 
  Country: None (occurrence: None)
  Receive Date: 20120718
  Receipt Date: 20120718
  Transmission Date: 20120928
  Serious: Yes (Death, Other)
  Sender: FDA-Public Use
  Company Number: None

PATIENT
  Sex: Male

DRUGS (1)
  1. KOMBIGLYZE XR [Suspect]
     Indication: BLOOD GLUCOSE INCREASED
     Dosage: 5-1,000 MG 1 X DAY MOUTH
     Route: 048
     Dates: start: 20110101, end: 20120101

REACTIONS (13)
  - HEADACHE [None]
  - DIARRHOEA [None]
  - MOOD ALTERED [None]
  - PERIPHERAL COLDNESS [None]
  - MYALGIA [None]
  - SOMNOLENCE [None]
  - DYSPNOEA [None]
  - ASTHENIA [None]
  - FATIGUE [None]
  - VISUAL IMPAIRMENT [None]
  - OEDEMA PERIPHERAL [None]
  - DIZZINESS [None]
  - HEART RATE IRREGULAR [None]
